FAERS Safety Report 6615789-0 (Version None)
Quarter: 2010Q1

REPORT INFORMATION
  Report Type: 
  Country: None (occurrence: None)
  Receive Date: 20100305
  Receipt Date: 20100223
  Transmission Date: 20100710
  Serious: No
  Sender: FDA-Public Use
  Company Number: US-JNJFOC-20100210927

PATIENT
  Sex: Female
  Weight: 107.96 kg

DRUGS (6)
  1. DURAGESIC-100 [Suspect]
     Indication: BACK PAIN
     Route: 062
  2. UNSPECIFED MEDICATIONS [Concomitant]
     Indication: CEREBRAL PALSY
  3. UNSPECIFED MEDICATIONS [Concomitant]
     Indication: BLINDNESS
  4. UNSPECIFED MEDICATIONS [Concomitant]
     Indication: CARDIAC DISORDER
  5. UNSPECIFED MEDICATIONS [Concomitant]
     Indication: SPINAL COLUMN STENOSIS
  6. UNSPECIFED MEDICATIONS [Concomitant]
     Indication: BACK PAIN

REACTIONS (1)
  - WRONG TECHNIQUE IN DRUG USAGE PROCESS [None]
